FAERS Safety Report 8850438 (Version 1)
Quarter: 2012Q4

REPORT INFORMATION
  Report Type: Report from Study
  Country: DE (occurrence: DE)
  Receive Date: 20121019
  Receipt Date: 20121019
  Transmission Date: 20130627
  Serious: Yes (Death)
  Sender: FDA-Public Use
  Company Number: DE-BAXTER-2012BAX019562

PATIENT
  Sex: Male

DRUGS (17)
  1. ENDOXAN 1G [Suspect]
     Indication: B-CELL LYMPHOMA
     Route: 042
     Dates: start: 20120321, end: 20120321
  2. RITUXIMAB [Suspect]
     Indication: B-CELL LYMPHOMA
     Route: 042
     Dates: start: 20120320, end: 20120320
  3. DOXORUBICIN [Suspect]
     Indication: B-CELL LYMPHOMA
     Route: 042
     Dates: start: 20120321, end: 20120321
  4. VINCRISTINE [Suspect]
     Indication: B-CELL LYMPHOMA
     Route: 042
     Dates: start: 20120321, end: 20120321
  5. PREDNISOLONE [Suspect]
     Indication: B-CELL LYMPHOMA
     Route: 048
     Dates: start: 20120321, end: 20120325
  6. FILGRASTIM [Suspect]
     Indication: B-CELL LYMPHOMA
     Route: 058
     Dates: start: 20120324, end: 20120402
  7. RAMIPRIL [Concomitant]
     Indication: HYPERTENSION ARTERIAL
     Route: 048
  8. NITRENDIPINE [Concomitant]
     Indication: HYPERTENSION ARTERIAL
     Route: 048
  9. TAMSULOSIN HYDROCHLORIDE [Concomitant]
     Indication: PROSTATIC HYPERTROPHY
     Route: 048
  10. MAGNESIUM [Concomitant]
     Indication: ATRIAL FIBRILLATION
     Route: 048
  11. PANTOPRAZOLE [Concomitant]
     Indication: GASTRIC ULCER PROPHYLAXIS
     Route: 048
     Dates: start: 20120321
  12. ONDANSETRON [Concomitant]
     Indication: DRUG USE FOR UNKNOWN INDICATION
     Route: 042
     Dates: start: 20120321
  13. ONDANSETRON [Concomitant]
     Route: 048
     Dates: start: 20120322
  14. LEVOFLOXACIN [Concomitant]
     Indication: ANTIBIOTIC THERAPY
     Route: 048
     Dates: start: 20120325
  15. ACICLOVIR [Concomitant]
     Indication: ANTIVIRAL PROPHYLAXIS
     Route: 048
     Dates: start: 20120321
  16. ENOXAPARIN [Concomitant]
     Indication: ATRIAL FIBRILLATION
     Route: 058
     Dates: start: 2008
  17. SPIRONOLACTONE [Concomitant]
     Indication: DIURETIC THERAPY
     Route: 048

REACTIONS (1)
  - Sudden cardiac death [Fatal]
